FAERS Safety Report 23898271 (Version 2)
Quarter: 2024Q3

REPORT INFORMATION
  Report Type: Spontaneous
  Country: GR (occurrence: GR)
  Receive Date: 20240524
  Receipt Date: 20240701
  Transmission Date: 20241016
  Serious: Yes (Other)
  Sender: PFIZER
  Company Number: GR-009507513-2404GRC010675

PATIENT
  Age: 65 Year
  Sex: Male

DRUGS (2)
  1. AXITINIB [Suspect]
     Active Substance: AXITINIB
     Indication: Metastatic renal cell carcinoma
     Dosage: 2 CYCLES
  2. KEYTRUDA [Suspect]
     Active Substance: PEMBROLIZUMAB
     Indication: Metastatic renal cell carcinoma
     Dosage: 200 MG, EVERY 3 WEEKS [200 MILLIGRAM, Q3W 2 CYCLES)]

REACTIONS (1)
  - Myositis [Unknown]
